FAERS Safety Report 9852954 (Version 1)
Quarter: 2014Q1

REPORT INFORMATION
  Report Type: Spontaneous
  Country: IN (occurrence: IN)
  Receive Date: 20140129
  Receipt Date: 20140129
  Transmission Date: 20141002
  Serious: Yes (Other)
  Sender: FDA-Public Use
  Company Number: IN-ROXANE LABORATORIES, INC.-2014-RO-00114RO

PATIENT
  Age: 48 Year
  Sex: Male

DRUGS (4)
  1. RISPERIDONE [Suspect]
     Dosage: 6 MG
  2. LITHIUM CARBONATE [Suspect]
     Indication: BIPOLAR DISORDER
  3. SODIUM VALPROATE [Suspect]
     Indication: BIPOLAR DISORDER
     Dosage: 1500 MG
  4. OLANZAPINE [Concomitant]
     Indication: BIPOLAR DISORDER

REACTIONS (2)
  - Priapism [Recovered/Resolved]
  - Hypothyroidism [Recovered/Resolved]
